FAERS Safety Report 7686094-9 (Version None)
Quarter: 2011Q3

REPORT INFORMATION
  Report Type: 
  Country: None (occurrence: None)
  Receive Date: 20110816
  Receipt Date: 20110804
  Transmission Date: 20111222
  Serious: Yes (Other)
  Sender: FDA-Public Use
  Company Number: US-PFIZER INC-2010140077

PATIENT
  Sex: Female
  Weight: 61 kg

DRUGS (9)
  1. TENORMIN [Suspect]
     Indication: HYPERTENSION
     Dosage: 25 MG, 1X/DAY
     Route: 048
     Dates: start: 19990901
  2. ATACAND [Suspect]
     Indication: HYPERTENSION
     Dosage: 8 MG, 1X/DAY
     Route: 048
     Dates: start: 20100901
  3. ATACAND [Suspect]
     Dosage: 8 MG, DAILY
  4. TENORMIN [Suspect]
     Dosage: 25 MG, DAILY
  5. TENORMIN [Suspect]
     Dosage: 5 MG DAILY
     Route: 048
  6. ASPIRIN [Concomitant]
     Dosage: 325 MG QOD
     Route: 048
  7. VALIUM [Concomitant]
     Indication: ANXIETY
     Dosage: 2 MG, AS NEEDED
     Route: 048
  8. ATACAND [Suspect]
     Dosage: 32 MG DAILY
     Route: 048
     Dates: start: 20110101
  9. HYDROCHLOROTHIAZIDE [Concomitant]
     Dosage: 12.5 MG, 1X/DAY
     Route: 048

REACTIONS (17)
  - CATARACT [None]
  - FATIGUE [None]
  - TRANSIENT ISCHAEMIC ATTACK [None]
  - BLOOD POTASSIUM INCREASED [None]
  - GLOMERULAR FILTRATION RATE DECREASED [None]
  - WEIGHT INCREASED [None]
  - NEUROPATHY PERIPHERAL [None]
  - COUGH [None]
  - HYPOAESTHESIA [None]
  - RENAL IMPAIRMENT [None]
  - BLOOD CHOLESTEROL DECREASED [None]
  - BLOOD CREATINE INCREASED [None]
  - HEART RATE DECREASED [None]
  - DRUG INEFFECTIVE [None]
  - BLOOD HOMOCYSTEINE INCREASED [None]
  - LIBIDO DECREASED [None]
  - NERVOUSNESS [None]
